FAERS Safety Report 6906000-1 (Version None)
Quarter: 2010Q3

REPORT INFORMATION
  Report Type: 
  Country: None (occurrence: None)
  Receive Date: 20100804
  Receipt Date: 20100722
  Transmission Date: 20110219
  Serious: Yes (Other)
  Sender: FDA-Public Use
  Company Number: PHHY2010MX48335

PATIENT
  Age: 50 Year
  Sex: Female
  Weight: 60 kg

DRUGS (2)
  1. DIOVAN HCT [Suspect]
     Indication: HYPERTENSION
     Dosage: 2 TABLETS (160/25 MG) DAILY
     Dates: start: 20090601
  2. BUMETADINE [Concomitant]

REACTIONS (8)
  - COLITIS [None]
  - DIZZINESS [None]
  - EAR PAIN [None]
  - EYE IRRITATION [None]
  - GASTRIC INFECTION [None]
  - HEADACHE [None]
  - URINARY TRACT INFECTION [None]
  - VAGINAL INFECTION [None]
